FAERS Safety Report 19749828 (Version 1)
Quarter: 2021Q3

REPORT INFORMATION
  Report Type: Spontaneous
  Country: CN (occurrence: CN)
  Receive Date: 20210826
  Receipt Date: 20210826
  Transmission Date: 20211014
  Serious: Yes (Hospitalization)
  Sender: FDA-Public Use
  Company Number: CN-AXELLIA-003868

PATIENT
  Age: 14 Year
  Sex: Male

DRUGS (2)
  1. CEFOPERAZONE/SULBACTAM [Concomitant]
     Active Substance: CEFOPERAZONE\SULBACTAM
     Indication: ACINETOBACTER INFECTION
     Dosage: 3 G EVERY 6 H
     Dates: start: 20190315
  2. POLYMYXIN B. [Suspect]
     Active Substance: POLYMYXIN B
     Indication: ACINETOBACTER INFECTION
     Dosage: 50,000U ONCE DAILY FOR 4 DAYS,THEN 50,000U ONCE EVERY OTHER DAY
     Route: 037
     Dates: start: 20190315, end: 2019

REACTIONS (6)
  - Skin hyperpigmentation [Recovered/Resolved]
  - Papule [Recovered/Resolved]
  - Amnesia [Recovered/Resolved]
  - Pain in extremity [Recovered/Resolved]
  - Hypotonia [Recovered/Resolved]
  - Back pain [Recovered/Resolved]

NARRATIVE: CASE EVENT DATE: 2019
